FAERS Safety Report 5535761-1 (Version None)
Quarter: 2007Q4

REPORT INFORMATION
  Report Type: 
  Country: None (occurrence: None)
  Receive Date: 20071203
  Receipt Date: 20071203
  Transmission Date: 20080405
  Serious: Yes (Hospitalization)
  Sender: FDA-Public Use
  Company Number: None

PATIENT
  Sex: Male
  Weight: 98.2 kg

DRUGS (1)
  1. CISPLATIN [Suspect]
     Dosage: 211 MG
     Dates: end: 20071029

REACTIONS (5)
  - DEHYDRATION [None]
  - INFUSION RELATED REACTION [None]
  - NAUSEA [None]
  - NEUTROPENIA [None]
  - VOMITING [None]
